FAERS Safety Report 7388375-5 (Version None)
Quarter: 2011Q2

REPORT INFORMATION
  Report Type: 
  Country: None (occurrence: None)
  Receive Date: 20110401
  Receipt Date: 20110322
  Transmission Date: 20111010
  Serious: No
  Sender: FDA-Public Use
  Company Number: PHHY2011US24919

PATIENT
  Sex: Female

DRUGS (14)
  1. TASIGNA [Suspect]
     Indication: CHRONIC MYELOID LEUKAEMIA
     Dosage: 1 DF, QD
     Route: 048
  2. FLUVIRIN 2010/2011 [Suspect]
     Indication: IMMUNISATION
     Dosage: 1 DF
     Dates: start: 20101231, end: 20101231
  3. METHYLDOPA [Concomitant]
     Route: 048
     Dates: start: 20110126, end: 20110128
  4. AMOXICILLIN AND CLAVULANATE POTASSIUM [Concomitant]
     Dosage: 875 MG, UNK
     Dates: start: 20110119, end: 20110128
  5. PROAIR HFA [Concomitant]
     Dates: start: 20110219
  6. OXYCODONE [Concomitant]
     Dosage: 5 MG, UNK
  7. CLONAZEPAM [Concomitant]
     Dosage: 1 MG, UNK
     Route: 048
     Dates: start: 20110126, end: 20110201
  8. PROZAC [Concomitant]
     Dosage: 20 MG, TID
     Route: 048
  9. FLUOXETINE [Concomitant]
     Dosage: 20 MG, UNK
     Route: 048
     Dates: start: 20110202, end: 20110218
  10. PROMETHAZINE [Concomitant]
     Dosage: 25 MG, UNK
     Route: 048
     Dates: start: 20110131, end: 20110218
  11. LEVAQUIN [Concomitant]
  12. CEFDINIR [Concomitant]
     Route: 048
     Dates: start: 20110131, end: 20110218
  13. FLUCONAZOLE [Concomitant]
     Dosage: 150 MG, UNK
     Route: 048
     Dates: start: 20110120, end: 20110128
  14. METHYLPREDNISOLONE [Concomitant]
     Dosage: 4 MG, UNK
     Dates: start: 20110131, end: 20110218

REACTIONS (7)
  - ASTHENIA [None]
  - ARTHRALGIA [None]
  - HYPERGAMMAGLOBULINAEMIA [None]
  - DIARRHOEA [None]
  - FATIGUE [None]
  - HEADACHE [None]
  - CONSTIPATION [None]
